FAERS Safety Report 8571021-2 (Version None)
Quarter: 2012Q3

REPORT INFORMATION
  Report Type: 
  Country: None (occurrence: None)
  Receive Date: 20120806
  Receipt Date: 20120731
  Transmission Date: 20120928
  Serious: No
  Sender: FDA-Public Use
  Company Number: US-009507513-1206USA02607

PATIENT

DRUGS (4)
  1. MAXALT [Suspect]
     Indication: MIGRAINE
     Dosage: UNK MG, UNK
     Route: 048
  2. TOPAMAX [Concomitant]
  3. MAXALT-MLT [Suspect]
     Indication: MIGRAINE
     Dosage: 20 MG, PRN
     Route: 048
     Dates: start: 20110601
  4. LIPITOR [Concomitant]

REACTIONS (6)
  - VOMITING [None]
  - THROAT IRRITATION [None]
  - DRUG LABEL CONFUSION [None]
  - ABDOMINAL PAIN UPPER [None]
  - DRUG INEFFECTIVE [None]
  - WRONG TECHNIQUE IN DRUG USAGE PROCESS [None]
